FAERS Safety Report 5058283-3 (Version None)
Quarter: 2006Q2

REPORT INFORMATION
  Report Type: 
  Country: None (occurrence: None)
  Receive Date: 20060627
  Receipt Date: 20051130
  Transmission Date: 20061013
  Serious: Yes (Other)
  Sender: FDA-Public Use
  Company Number: 426847

PATIENT
  Age: 59 Year
  Sex: Male
  Weight: 51 kg

DRUGS (9)
  1. CAPECITABINE (CAPECITABINE) [Suspect]
     Indication: COLON CANCER METASTATIC
     Dosage: 1000 MG/M2 2 PER DAY
  2. IRINOTECAN HCL [Suspect]
     Indication: COLORECTAL CANCER METASTATIC
     Dosage: 120 MG/M2 2 PER 3 WEEK
  3. WARFARIN SODIUM [Suspect]
     Indication: PROPHYLAXIS
     Dosage: 10.35 MG DAILY ORAL
     Route: 048
  4. ATROPINE [Concomitant]
  5. EPOETIN ALFA (EPOETIN ALFA) [Concomitant]
  6. RABEPRAZOLE (RABEPRAZOLE SODIUM) [Concomitant]
  7. POTASSIUM CHLORIDE [Concomitant]
  8. HYDROMORPHONE (HYDROMORPHONE HYDROCHLORIDE) [Concomitant]
  9. SENNA (SENNA) [Concomitant]

REACTIONS (2)
  - DRUG INTERACTION [None]
  - INTERNATIONAL NORMALISED RATIO INCREASED [None]
